FAERS Safety Report 5919686-5 (Version None)
Quarter: 2008Q4

REPORT INFORMATION
  Report Type: 
  Country: None (occurrence: None)
  Receive Date: 20081015
  Receipt Date: 20081007
  Transmission Date: 20090506
  Serious: Yes (Death)
  Sender: FDA-Public Use
  Company Number: JP-BAXTER-2008BH009422

PATIENT
  Sex: Male

DRUGS (1)
  1. SORBITOL 3% IN PLASTIC CONTAINER [Suspect]
     Indication: BLADDER IRRIGATION
     Dosage: DOSE UNIT:UNKNOWN
     Route: 066
     Dates: start: 20050912

REACTIONS (3)
  - HYPOVOLAEMIC SHOCK [None]
  - METABOLIC ACIDOSIS [None]
  - RESPIRATORY ARREST [None]
